FAERS Safety Report 24894992 (Version 1)
Quarter: 2025Q1

REPORT INFORMATION
  Report Type: Other
  Country: US (occurrence: US)
  Receive Date: 20250128
  Receipt Date: 20250128
  Transmission Date: 20250408
  Serious: Yes (Other)
  Sender: APPCO PHARMA LLC
  Company Number: US-Appco Pharma LLC-2169932

PATIENT
  Age: 46 Year
  Sex: Male

DRUGS (4)
  1. DOXYCYCLINE [Suspect]
     Active Substance: DOXYCYCLINE
     Indication: Antibiotic prophylaxis
  2. MOXIFLOXACIN [Suspect]
     Active Substance: MOXIFLOXACIN
  3. KETOROLAC TROMETHAMINE [Suspect]
     Active Substance: KETOROLAC TROMETHAMINE
  4. PREDNISOLONE ACETATE [Suspect]
     Active Substance: PREDNISOLONE ACETATE

REACTIONS (1)
  - Keratitis fungal [Recovered/Resolved]
